FAERS Safety Report 13027734 (Version 1)
Quarter: 2016Q4

REPORT INFORMATION
  Report Type: Spontaneous
  Country: IT (occurrence: IT)
  Receive Date: 20161214
  Receipt Date: 20161214
  Transmission Date: 20170207
  Serious: Yes (Hospitalization, Other)
  Sender: FDA-Public Use
  Company Number: IT-JNJFOC-20161208641

PATIENT
  Age: 48 Year
  Sex: Male

DRUGS (7)
  1. PAROXETINE MESYLATE [Suspect]
     Active Substance: PAROXETINE MESYLATE
     Indication: DEPRESSION
     Route: 048
     Dates: start: 20161128, end: 20161128
  2. GABAPENTIN. [Suspect]
     Active Substance: GABAPENTIN
     Indication: MOOD SWINGS
     Route: 048
     Dates: start: 20161128, end: 20161128
  3. XANAX [Suspect]
     Active Substance: ALPRAZOLAM
     Indication: ANXIETY
     Route: 048
     Dates: start: 20161128, end: 20161128
  4. LIORESAL [Concomitant]
     Active Substance: BACLOFEN
     Indication: PARALYSIS
     Route: 048
     Dates: start: 20150101
  5. DEPAKIN [Suspect]
     Active Substance: VALPROATE SODIUM
     Indication: MOOD SWINGS
     Route: 048
     Dates: start: 20161128, end: 20161128
  6. FENTANYL. [Suspect]
     Active Substance: FENTANYL
     Indication: PAIN
     Route: 062
     Dates: start: 20161128, end: 20161128
  7. TARGIN [Suspect]
     Active Substance: NALOXONE HYDROCHLORIDE\OXYCODONE HYDROCHLORIDE
     Indication: PAIN
     Route: 048
     Dates: start: 20161128, end: 20161128

REACTIONS (3)
  - Intentional overdose [Unknown]
  - Intentional self-injury [Unknown]
  - Sluggishness [Recovered/Resolved]

NARRATIVE: CASE EVENT DATE: 20161128
